FAERS Safety Report 16431249 (Version 2)
Quarter: 2019Q3

REPORT INFORMATION
  Report Type: Report from Study
  Country: GB (occurrence: GB)
  Receive Date: 20190614
  Receipt Date: 20190705
  Transmission Date: 20191004
  Serious: Yes (Hospitalization)
  Sender: FDA-Public Use
  Company Number: GB-CLOVIS ONCOLOGY-CLO-2019-001098

PATIENT

DRUGS (1)
  1. RUCAPARIB [Suspect]
     Active Substance: RUCAPARIB
     Indication: MESOTHELIOMA
     Dosage: 600 MG, UNK
     Route: 048
     Dates: start: 20190515, end: 20190527

REACTIONS (1)
  - Neutropenic sepsis [Recovered/Resolved]

NARRATIVE: CASE EVENT DATE: 20190526
